FAERS Safety Report 7610925-1 (Version None)
Quarter: 2011Q3

REPORT INFORMATION
  Report Type: 
  Country: None (occurrence: None)
  Receive Date: 20110715
  Receipt Date: 20110706
  Transmission Date: 20111222
  Serious: Yes (Hospitalization)
  Sender: FDA-Public Use
  Company Number: GB-ASTRAZENECA-2011SE09088

PATIENT
  Age: 27746 Day
  Sex: Male
  Weight: 81.2 kg

DRUGS (8)
  1. VANDETANIB [Suspect]
     Indication: TRANSITIONAL CELL CARCINOMA
     Route: 048
     Dates: start: 20110119
  2. VANDETANIB [Interacting]
     Indication: BLADDER CANCER
     Route: 048
     Dates: start: 20110119
  3. GEMCITABINE [Interacting]
     Dosage: 2000 MG ON DAY 1 AND 8 OF EACH 21 DAY CYCLE
     Route: 042
     Dates: start: 20110126
  4. GEMCITABINE [Interacting]
     Dosage: 2000 MG ON DAY 1 AND 8 OF EACH 21 DAY CYCLE
     Route: 042
     Dates: start: 20110126
  5. CARBOPLATIN [Interacting]
     Indication: TRANSITIONAL CELL CARCINOMA
     Dosage: 330 MG ON DAY 1 OF EACH 21 DAY CYCLE
     Route: 042
     Dates: start: 20110119
  6. GEMCITABINE [Interacting]
     Indication: BLADDER CANCER
     Dosage: DAY 1 OF EACH 21 DAY CYCLE
     Route: 042
     Dates: start: 20110119, end: 20110119
  7. CARBOPLATIN [Interacting]
     Indication: BLADDER CANCER
     Dosage: 330 MG ON DAY 1 OF EACH 21 DAY CYCLE
     Route: 042
     Dates: start: 20110119
  8. GEMCITABINE [Interacting]
     Indication: TRANSITIONAL CELL CARCINOMA
     Dosage: DAY 1 OF EACH 21 DAY CYCLE
     Route: 042
     Dates: start: 20110119, end: 20110119

REACTIONS (1)
  - DIZZINESS [None]
